FAERS Safety Report 20412229 (Version 1)
Quarter: 2022Q1

REPORT INFORMATION
  Report Type: Spontaneous
  Country: DE (occurrence: DE)
  Receive Date: 20220201
  Receipt Date: 20220201
  Transmission Date: 20220423
  Serious: Yes (Other)
  Sender: FDA-Public Use
  Company Number: None

PATIENT
  Age: 94 Year
  Sex: Female
  Weight: 42 kg

DRUGS (1)
  1. OMEPRAZOLE [Suspect]
     Active Substance: OMEPRAZOLE
     Indication: Gastrooesophageal reflux disease
     Dosage: 1 CAPSULE PER DAY (BUT STARTED ONLY WITH 10MG (1/4), INCREASING TO 15MG)
     Route: 048
     Dates: start: 20211030, end: 20211214

REACTIONS (7)
  - Constipation [Recovering/Resolving]
  - Paraesthesia [Not Recovered/Not Resolved]
  - Hallucination [Recovering/Resolving]
  - Daydreaming [Recovering/Resolving]
  - Dementia [Recovering/Resolving]
  - Anxiety [Recovering/Resolving]
  - Intentional product misuse [Recovered/Resolved]

NARRATIVE: CASE EVENT DATE: 20211030
